FAERS Safety Report 21958437 (Version 1)
Quarter: 2023Q1

REPORT INFORMATION
  Report Type: Spontaneous
  Country: US (occurrence: None)
  Receive Date: 20230203
  Receipt Date: 20230203
  Transmission Date: 20230417
  Serious: No
  Sender: FDA-Public Use
  Company Number: None

PATIENT
  Age: 74 Year
  Sex: Female

DRUGS (1)
  1. ENBREL [Suspect]
     Active Substance: ETANERCEPT
     Indication: Psoriasis
     Dosage: INJECT 50MG SUBCUTANEOUSLY TWO TIMES A  WEEK  72-96 HOURS APART   AS DIRECTED?
     Route: 058
     Dates: start: 202101

REACTIONS (1)
  - Bronchitis [None]
